FAERS Safety Report 10163778 (Version 4)
Quarter: 2014Q2

REPORT INFORMATION
  Report Type: Spontaneous
  Country: JP (occurrence: JP)
  Receive Date: 20140509
  Receipt Date: 20140530
  Transmission Date: 20141212
  Serious: Yes (Death)
  Sender: FDA-Public Use
  Company Number: JP-ASTRAZENECA-2014SE29088

PATIENT
  Age: 23761 Day
  Sex: Male
  Weight: 51 kg

DRUGS (6)
  1. NEXIUM [Suspect]
     Indication: GASTRIC ULCER
     Route: 048
     Dates: start: 20140318, end: 20140428
  2. LASIX [Concomitant]
     Route: 048
     Dates: start: 20140318
  3. ALDACTONE A [Concomitant]
     Route: 048
     Dates: start: 20140318
  4. FOLIAMIN [Concomitant]
     Route: 065
     Dates: start: 20140320
  5. AMINOLEBAN [Concomitant]
     Route: 065
     Dates: start: 20140325
  6. PREDNISOLONE [Concomitant]
     Indication: HEPATITIS ALCOHOLIC
     Route: 048
     Dates: start: 20140408

REACTIONS (1)
  - Toxic epidermal necrolysis [Fatal]
